FAERS Safety Report 20264612 (Version 2)
Quarter: 2022Q1

REPORT INFORMATION
  Report Type: Spontaneous
  Country: US (occurrence: US)
  Receive Date: 20211231
  Receipt Date: 20220122
  Transmission Date: 20220423
  Serious: No
  Sender: FDA-Public Use
  Company Number: US-ORGANON-O2112USA002245

PATIENT
  Age: 27 Year
  Sex: Female
  Weight: 161.7 kg

DRUGS (8)
  1. NEXPLANON [Suspect]
     Active Substance: ETONOGESTREL
     Indication: Menstruation irregular
     Dosage: 1 IMPLANT OF 68 MG, ONE EVERY THREE YEARS
     Route: 059
     Dates: start: 20211122, end: 20211221
  2. NAPROSYN [Concomitant]
     Active Substance: NAPROXEN
     Indication: Pain
     Dosage: 1 TABLET BID
     Route: 048
  3. PROVERA [Concomitant]
     Active Substance: MEDROXYPROGESTERONE ACETATE
     Dosage: 1 TABLET EVERY 24 HRS ON DAY 11-21 OF CYCLE
     Route: 048
  4. LOSARTAN [Concomitant]
     Active Substance: LOSARTAN
     Dosage: 1 TABLET EVERY 24 HOURS
     Route: 048
  5. METFORMIN [Concomitant]
     Active Substance: METFORMIN HYDROCHLORIDE
     Dosage: 2 TABLET QD WITH EVENING MEAL
     Route: 048
  6. VENLAFAXINE [Concomitant]
     Active Substance: VENLAFAXINE HYDROCHLORIDE
     Dosage: 1 CAP, QD
     Route: 048
  7. BIOTIN [Concomitant]
     Active Substance: BIOTIN
     Dosage: CAPSULE, QD
     Route: 048
  8. IBUPROFEN [Concomitant]
     Active Substance: IBUPROFEN
     Dosage: PRN

REACTIONS (8)
  - Wound [Unknown]
  - Fat necrosis [Unknown]
  - Dermatitis contact [Unknown]
  - Implant site infection [Unknown]
  - Pain in extremity [Unknown]
  - Implant site inflammation [Unknown]
  - Implant site erythema [Unknown]
  - Implant site fibrosis [Unknown]

NARRATIVE: CASE EVENT DATE: 20211122
